FAERS Safety Report 4298038-0 (Version None)
Quarter: 2004Q1

REPORT INFORMATION
  Report Type: 
  Country: None (occurrence: None)
  Receive Date: 20040218
  Receipt Date: 20020102
  Transmission Date: 20041129
  Serious: Yes (Other)
  Sender: FDA-Public Use
  Company Number: US-BRISTOL-MYERS SQUIBB COMPANY-11716255

PATIENT
  Age: 45 Year
  Sex: Female

DRUGS (7)
  1. STADOL [Suspect]
     Indication: FIBROMYALGIA
     Route: 045
  2. METHADONE HCL [Concomitant]
  3. SKELAXIN [Concomitant]
  4. ULTRAM [Concomitant]
  5. DURACT [Concomitant]
  6. PROZAC [Concomitant]
  7. EFFEXOR [Concomitant]

REACTIONS (2)
  - DEPENDENCE [None]
  - DRUG ADDICT [None]
